FAERS Safety Report 19609648 (Version 1)
Quarter: 2021Q3

REPORT INFORMATION
  Report Type: Spontaneous
  Country: US (occurrence: US)
  Receive Date: 20210723
  Receipt Date: 20210723
  Transmission Date: 20211014
  Serious: Yes (Other)
  Sender: FDA-Public Use
  Company Number: None

PATIENT
  Sex: Female

DRUGS (28)
  1. ISONIAZID. [Concomitant]
     Active Substance: ISONIAZID
  2. MECLIZINE [Concomitant]
     Active Substance: MECLIZINE HYDROCHLORIDE
  3. PILOCARPINE. [Concomitant]
     Active Substance: PILOCARPINE
  4. TRAZODONE [Suspect]
     Active Substance: TRAZODONE HYDROCHLORIDE
  5. ENBREL [Suspect]
     Active Substance: ETANERCEPT
     Indication: RHEUMATOID ARTHRITIS
     Route: 058
  6. PENICILLIN VK [Concomitant]
     Active Substance: PENICILLIN V POTASSIUM
  7. PRAVASTATIN. [Concomitant]
     Active Substance: PRAVASTATIN
  8. PREGABALIN. [Concomitant]
     Active Substance: PREGABALIN
  9. RIZATRIPTAN. [Concomitant]
     Active Substance: RIZATRIPTAN
  10. NYSTATIN. [Concomitant]
     Active Substance: NYSTATIN
  11. LOSARTAN POT [Concomitant]
     Active Substance: LOSARTAN POTASSIUM
  12. PERMETHRIN. [Concomitant]
     Active Substance: PERMETHRIN
  13. VITAMIN B6 [Concomitant]
     Active Substance: PYRIDOXINE HYDROCHLORIDE
  14. CIPROFLOXACN [Concomitant]
     Active Substance: CIPROFLOXACIN
  15. CYCLOBENZAPR [Concomitant]
     Active Substance: CYCLOBENZAPRINE
  16. METHOTREXATE. [Concomitant]
     Active Substance: METHOTREXATE
  17. NAPROXEN. [Concomitant]
     Active Substance: NAPROXEN
  18. CIPRO/DEXA [Concomitant]
  19. MONTELUKAST [Concomitant]
     Active Substance: MONTELUKAST SODIUM
  20. TEMAZEPAM. [Concomitant]
     Active Substance: TEMAZEPAM
  21. WAL?FEX ALLR [Concomitant]
  22. FLUCONAZOLE. [Concomitant]
     Active Substance: FLUCONAZOLE
  23. LISINOPRIL. [Concomitant]
     Active Substance: LISINOPRIL
  24. METRONIDAZOL [Concomitant]
     Active Substance: METRONIDAZOLE
  25. OMEPRAZOLE. [Concomitant]
     Active Substance: OMEPRAZOLE
  26. FOLIC ACID. [Concomitant]
     Active Substance: FOLIC ACID
  27. TRAMADOL HCL ER [Concomitant]
  28. VENTOLIN HFA [Concomitant]
     Active Substance: ALBUTEROL SULFATE

REACTIONS (2)
  - Tuberculosis [None]
  - Product supply issue [None]
